FAERS Safety Report 8042554-2 (Version None)
Quarter: 2012Q1

REPORT INFORMATION
  Report Type: 
  Country: None (occurrence: None)
  Receive Date: 20120112
  Receipt Date: 20120109
  Transmission Date: 20120608
  Serious: Yes (Other)
  Sender: FDA-Public Use
  Company Number: US-PFIZER INC-2012006374

PATIENT
  Sex: Female
  Weight: 67.574 kg

DRUGS (8)
  1. BACLOFEN [Concomitant]
     Indication: MIGRAINE
     Dosage: 10 MG, 3X/DAY
  2. CHANTIX [Suspect]
     Indication: SMOKING CESSATION THERAPY
     Dosage: 0.5 MG, 1X/DAY
     Route: 048
     Dates: start: 20120104, end: 20120108
  3. PROMETHAZINE [Concomitant]
     Indication: NAUSEA
     Dosage: 25 MG, 3X/DAY
  4. DICLOFENAC [Concomitant]
     Dosage: 50 MG, 3X/DAY
  5. BACLOFEN [Concomitant]
     Indication: MUSCLE RELAXANT THERAPY
  6. CYMBALTA [Concomitant]
     Indication: DEPRESSION
     Dosage: 60 MG, DAILY
  7. PERCOCET [Concomitant]
     Indication: MIGRAINE
     Dosage: 325/10 MG FOUR TIMES A DAY
  8. KLONOPIN [Concomitant]
     Indication: ANXIETY
     Dosage: 3 MG, 1X/DAY

REACTIONS (8)
  - FATIGUE [None]
  - CEREBRAL HAEMANGIOMA [None]
  - MUSCLE TIGHTNESS [None]
  - BRAIN MASS [None]
  - AMNESIA [None]
  - DYSKINESIA [None]
  - CONVULSION [None]
  - MUSCLE SPASMS [None]
